FAERS Safety Report 13219033 (Version 1)
Quarter: 2017Q1

REPORT INFORMATION
  Report Type: Other
  Country: US (occurrence: US)
  Receive Date: 20170210
  Receipt Date: 20170210
  Transmission Date: 20170428
  Serious: No
  Sender: FDA-Public Use
  Company Number: US-ACORDA-ACO_122976_2016

PATIENT
  Sex: Female

DRUGS (2)
  1. AMPYRA [Suspect]
     Active Substance: DALFAMPRIDINE
     Indication: GAIT DISTURBANCE
     Dosage: 10 MG, BID
     Route: 048
     Dates: start: 201310
  2. AMPYRA [Suspect]
     Active Substance: DALFAMPRIDINE
     Indication: MULTIPLE SCLEROSIS

REACTIONS (8)
  - Headache [Not Recovered/Not Resolved]
  - Muscle spasms [Not Recovered/Not Resolved]
  - Pain in extremity [Not Recovered/Not Resolved]
  - Abdominal pain [Not Recovered/Not Resolved]
  - Dizziness [Not Recovered/Not Resolved]
  - Peroneal nerve palsy [Unknown]
  - Back pain [Not Recovered/Not Resolved]
  - Urinary tract infection [Unknown]
